FAERS Safety Report 22615100 (Version 1)
Quarter: 2023Q2

REPORT INFORMATION
  Report Type: Spontaneous
  Country: GB (occurrence: GB)
  Receive Date: 20230619
  Receipt Date: 20230619
  Transmission Date: 20230721
  Serious: Yes (Other)
  Sender: FDA-Public Use
  Company Number: None

PATIENT
  Sex: Female

DRUGS (1)
  1. MONTELUKAST [Suspect]
     Active Substance: MONTELUKAST SODIUM
     Indication: Asthma
     Dosage: ONE EACH NIGHT
     Route: 065
     Dates: start: 2023

REACTIONS (1)
  - Chorioretinopathy [Recovering/Resolving]

NARRATIVE: CASE EVENT DATE: 20230526
